FAERS Safety Report 12137473 (Version 2)
Quarter: 2016Q1

REPORT INFORMATION
  Report Type: Spontaneous
  Country: US (occurrence: US)
  Receive Date: 20160302
  Receipt Date: 20160325
  Transmission Date: 20160526
  Serious: Yes (Hospitalization, Other)
  Sender: FDA-Public Use
  Company Number: US-PFIZER INC-2016122951

PATIENT
  Age: 53 Year
  Sex: Male
  Weight: 61 kg

DRUGS (7)
  1. CARBAMAZEPIN [Concomitant]
     Active Substance: CARBAMAZEPINE
     Indication: BIPOLAR DISORDER
     Dosage: 200MG TWO TABLETS BY MOUTH TWICE A DAY
     Route: 048
  2. CLONIDINE. [Concomitant]
     Active Substance: CLONIDINE
     Indication: BLOOD PRESSURE ABNORMAL
     Dosage: TAKE A 0.01MG TABLET TWICE A DAY
     Route: 048
     Dates: start: 2005
  3. DILANTIN [Suspect]
     Active Substance: PHENYTOIN
     Dosage: 100 MG, WEEKLY
     Route: 048
     Dates: start: 201508
  4. ALPRAZOLAM. [Concomitant]
     Active Substance: ALPRAZOLAM
     Indication: ANXIETY
     Dosage: 1MG ONE TABLET THREE TIMES A DAY
     Dates: start: 2005
  5. DILANTIN [Suspect]
     Active Substance: PHENYTOIN
     Indication: SEIZURE
     Dosage: 100 MG, 4X/DAY
     Route: 048
     Dates: start: 2005
  6. CLONIDINE. [Concomitant]
     Active Substance: CLONIDINE
     Dosage: TAKING IT MAYBE ONCE A DAY
     Route: 048
  7. NITROGLYCERIN. [Concomitant]
     Active Substance: NITROGLYCERIN
     Indication: CHEST PAIN
     Dosage: THREE TIMES A DAY AS NEEDED

REACTIONS (9)
  - Head injury [Recovered/Resolved with Sequelae]
  - Concussion [Unknown]
  - Headache [Unknown]
  - Drug ineffective [Not Recovered/Not Resolved]
  - Fall [Unknown]
  - Chest pain [Unknown]
  - Intentional underdose [Not Recovered/Not Resolved]
  - Hypoaesthesia [Unknown]
  - Disease recurrence [Unknown]

NARRATIVE: CASE EVENT DATE: 201508
